FAERS Safety Report 21506750 (Version 1)
Quarter: 2022Q4

REPORT INFORMATION
  Report Type: Spontaneous
  Country: US (occurrence: US)
  Receive Date: 20221026
  Receipt Date: 20221026
  Transmission Date: 20230113
  Serious: No
  Sender: FDA-Public Use
  Company Number: US-BoehringerIngelheim-2022-BI-199258

PATIENT
  Age: 69 Year
  Sex: Female

DRUGS (1)
  1. COMBIVENT [Suspect]
     Active Substance: ALBUTEROL SULFATE\IPRATROPIUM BROMIDE
     Indication: Product used for unknown indication
     Dosage: COMBIVENT RESPIMAT INHALATION AEROSOL SOLUTION 20-100 MCG/ACT
     Route: 055

REACTIONS (1)
  - Intentional overdose [Recovered/Resolved]
